FAERS Safety Report 15618937 (Version 1)
Quarter: 2018Q4

REPORT INFORMATION
  Report Type: Spontaneous
  Country: FI (occurrence: FI)
  Receive Date: 20181114
  Receipt Date: 20181114
  Transmission Date: 20190205
  Serious: Yes (Other)
  Sender: FDA-Public Use
  Company Number: FI-ELI_LILLY_AND_COMPANY-FI201807010558

PATIENT
  Sex: Female

DRUGS (11)
  1. PRIMASPAN [Suspect]
     Active Substance: ASPIRIN
     Indication: CEREBRAL INFARCTION
     Dosage: 100 MG, BID
     Route: 048
  2. CLOPIDOGREL [Interacting]
     Active Substance: CLOPIDOGREL BISULFATE
     Dosage: UNK UNK, UNKNOWN
     Route: 048
     Dates: start: 20180110, end: 201802
  3. THYROXIN [Suspect]
     Active Substance: LEVOTHYROXINE
     Indication: THYROID DISORDER
     Dosage: 25 UG, UNKNOWN
     Route: 048
     Dates: start: 20161214
  4. PANADOL [Concomitant]
     Active Substance: ACETAMINOPHEN
     Indication: PRODUCT USED FOR UNKNOWN INDICATION
     Dosage: UNK, UNKNOWN
     Route: 065
  5. ZOLT /00914902/ [Suspect]
     Active Substance: ZOLPIDEM\ZOLPIDEM TARTRATE
     Indication: ABDOMINAL DISCOMFORT
     Dosage: 30 MG, UNKNOWN
     Route: 048
     Dates: start: 20180110, end: 201803
  6. CLOPIDOGREL [Interacting]
     Active Substance: CLOPIDOGREL BISULFATE
     Indication: PRODUCT USED FOR UNKNOWN INDICATION
     Dosage: 75 MG, UNKNOWN
     Route: 048
     Dates: start: 20180110, end: 201803
  7. SOMAC [Suspect]
     Active Substance: PANTOPRAZOLE SODIUM
     Indication: PRODUCT USED FOR UNKNOWN INDICATION
     Dosage: UNK UNK, UNKNOWN
     Route: 065
  8. DULOXETINE HYDROCHLORIDE. [Suspect]
     Active Substance: DULOXETINE HYDROCHLORIDE
     Indication: PRODUCT USED FOR UNKNOWN INDICATION
     Dosage: UNK UNK, UNKNOWN
     Route: 065
  9. CLOPIDOGREL [Interacting]
     Active Substance: CLOPIDOGREL BISULFATE
     Dosage: 75 MG, DAILY
     Route: 048
     Dates: start: 20180110, end: 201804
  10. BURANA [Suspect]
     Active Substance: IBUPROFEN
     Indication: MUSCULOSKELETAL PAIN
     Dosage: 800 MG, TID
     Route: 048
     Dates: start: 20161214
  11. ROSUVASTATIN ORION [Interacting]
     Active Substance: ROSUVASTATIN
     Indication: ANGIOPLASTY
     Dosage: 20 MG, UNKNOWN
     Route: 048
     Dates: start: 201801, end: 201802

REACTIONS (24)
  - Palpitations [Not Recovered/Not Resolved]
  - Amnesia [Not Recovered/Not Resolved]
  - Facial spasm [Not Recovered/Not Resolved]
  - Condition aggravated [Not Recovered/Not Resolved]
  - Nervous system disorder [Unknown]
  - Angina pectoris [Not Recovered/Not Resolved]
  - Dyspnoea [Not Recovered/Not Resolved]
  - Rash papular [Not Recovered/Not Resolved]
  - Nerve compression [Unknown]
  - Hernia [Unknown]
  - Asthenia [Not Recovered/Not Resolved]
  - Acne [Not Recovered/Not Resolved]
  - Eye colour change [Not Recovered/Not Resolved]
  - Diverticulitis [Not Recovered/Not Resolved]
  - Muscle twitching [Not Recovered/Not Resolved]
  - Gait inability [Not Recovered/Not Resolved]
  - Haematoma [Not Recovered/Not Resolved]
  - Paraesthesia [Not Recovered/Not Resolved]
  - Muscle spasms [Not Recovered/Not Resolved]
  - Abdominal pain upper [Not Recovered/Not Resolved]
  - Headache [Not Recovered/Not Resolved]
  - Osteoarthritis [Not Recovered/Not Resolved]
  - Vision blurred [Not Recovered/Not Resolved]
  - Confusional state [Not Recovered/Not Resolved]

NARRATIVE: CASE EVENT DATE: 201612
